FAERS Safety Report 22332088 (Version 1)
Quarter: 2023Q2

REPORT INFORMATION
  Report Type: Report from Study
  Country: US (occurrence: None)
  Receive Date: 20230517
  Receipt Date: 20230517
  Transmission Date: 20230721
  Serious: Yes (Death, Life-Threatening, Hospitalization, Other)
  Sender: FDA-Public Use
  Company Number: US-ROCHE-3349571

PATIENT

DRUGS (9)
  1. RITUXIMAB [Suspect]
     Active Substance: RITUXIMAB
     Indication: Burkitt^s lymphoma
     Dosage: SUBSEQUENT DOSE WERE GIVEN ON 17/OCT/2014, 11/NOV,2014, 03/DEC/2014, AND 01/JAN/2015
     Route: 065
     Dates: start: 20140924, end: 20140924
  2. FILGRASTIM [Suspect]
     Active Substance: FILGRASTIM
     Indication: Burkitt^s lymphoma
     Dosage: SUBSEQUENT DOSES WERE GIVEN ON 16/NO/2014, 08/DEC/2014, 09/JAN/2015
     Route: 065
     Dates: start: 20140929
  3. PREDNISONE [Suspect]
     Active Substance: PREDNISONE
     Indication: Burkitt^s lymphoma
     Dosage: SUBSEQUENT DOSE WERE GIVEN ON 17/OCT/2014, 11/NOV,2014, 03/DEC/2014, AND 01/JAN/2015
     Route: 065
     Dates: start: 20140924, end: 20140929
  4. VINCRISTINE [Suspect]
     Active Substance: VINCRISTINE
     Indication: Burkitt^s lymphoma
     Dosage: SUBSEQUENT DOSE WERE GIVEN ON 17/OCT/2014, 11/NOV,2014, 03/DEC/2014, AND 01/JAN/2015
     Route: 065
     Dates: start: 20140924, end: 20140929
  5. CYCLOPHOSPHAMIDE [Suspect]
     Active Substance: CYCLOPHOSPHAMIDE
     Indication: Burkitt^s lymphoma
     Dosage: SUBSEQUENT DOSE WERE GIVEN ON 21/OCT/2014, 15/NOV,2014 (900 MG/M2), 07/DEC/2014 (900 MG/M2), AND 05/
     Route: 065
     Dates: start: 20140928, end: 20140929
  6. DOXORUBICIN [Suspect]
     Active Substance: DOXORUBICIN
     Indication: Burkitt^s lymphoma
     Dosage: SUBSEQUENT DOSE WERE GIVEN ON 17/OCT/2014, 11/NOV,2014 (12 MG/M2), 03/DEC/2014  (12 MG/M2), AND 01/J
     Route: 065
     Dates: start: 20140924, end: 20140929
  7. ETOPOSIDE [Suspect]
     Active Substance: ETOPOSIDE
     Indication: Burkitt^s lymphoma
     Dosage: SUBSEQUENT DOSE WERE GIVEN ON 17/OCT/2014, 11/NOV,2014 (60 MG/M2), 03/DEC/2014  (60 MG/M2), AND 01/J
     Route: 065
     Dates: start: 20140924, end: 20140929
  8. METHOTREXATE [Suspect]
     Active Substance: METHOTREXATE
     Indication: Burkitt^s lymphoma
     Route: 065
     Dates: start: 20141114, end: 20141114
  9. METHOTREXATE [Suspect]
     Active Substance: METHOTREXATE
     Route: 065
     Dates: start: 20141202

REACTIONS (8)
  - Atrial fibrillation [Recovered/Resolved]
  - Anaemia [Recovered/Resolved]
  - Multiple organ dysfunction syndrome [Fatal]
  - Platelet count decreased [Unknown]
  - Acute kidney injury [Recovered/Resolved]
  - Febrile neutropenia [Recovered/Resolved]
  - Sepsis [Fatal]
  - Colitis [Recovered/Resolved]

NARRATIVE: CASE EVENT DATE: 20141008
